FAERS Safety Report 14897782 (Version 1)
Quarter: 2018Q2

REPORT INFORMATION
  Report Type: Spontaneous
  Country: PL (occurrence: PL)
  Receive Date: 20180515
  Receipt Date: 20180515
  Transmission Date: 20180711
  Serious: Yes (Death, Life-Threatening, Hospitalization, Other)
  Sender: FDA-Public Use
  Company Number: PL-MYLANLABS-2018M1031383

PATIENT
  Age: 69 Year
  Sex: Female

DRUGS (3)
  1. PREDNISONE. [Concomitant]
     Active Substance: PREDNISONE
     Indication: CHRONIC LYMPHOCYTIC LEUKAEMIA
     Dosage: UNK UNK, UNKNOWN FREQ. (REGIMEN: CHLORAMBUCIL-PREDNISONE)
     Route: 065
  2. BENDAMUSTINE HYDROCHLORIDE. [Suspect]
     Active Substance: BENDAMUSTINE HYDROCHLORIDE
     Indication: CHRONIC LYMPHOCYTIC LEUKAEMIA
     Dosage: UNK UNK, CYCLIC
     Route: 042
  3. MIDAZOLAM [Suspect]
     Active Substance: MIDAZOLAM HYDROCHLORIDE
     Indication: SEDATION
     Dosage: 2 MG, OTHER (PER HOUR)
     Route: 042

REACTIONS (25)
  - Anaemia [Recovering/Resolving]
  - Multiple organ dysfunction syndrome [Unknown]
  - Liver injury [Unknown]
  - Chromaturia [Unknown]
  - Autoimmune haemolytic anaemia [Unknown]
  - Hypotension [Unknown]
  - Lymphadenopathy [Unknown]
  - Agitation [Recovering/Resolving]
  - Jaundice [Unknown]
  - Thrombocytopenia [Unknown]
  - Renal injury [Unknown]
  - Pyrexia [Unknown]
  - Back pain [Unknown]
  - Hyperkalaemia [Unknown]
  - Confusional state [Unknown]
  - Dyspnoea [Unknown]
  - Haemolysis [Unknown]
  - Renal disorder [Unknown]
  - Cardiac arrest [Fatal]
  - Hyporesponsive to stimuli [Unknown]
  - Electrocardiogram ST segment depression [Unknown]
  - Lactic acidosis [Unknown]
  - Tachypnoea [Unknown]
  - Asthenia [Unknown]
  - Disseminated intravascular coagulation [Unknown]
